FAERS Safety Report 8587588-4 (Version None)
Quarter: 2012Q3

REPORT INFORMATION
  Report Type: 
  Country: None (occurrence: None)
  Receive Date: 20120810
  Receipt Date: 20120803
  Transmission Date: 20120928
  Serious: Yes (Other)
  Sender: FDA-Public Use
  Company Number: JP-009507513-1208JPN002823

PATIENT

DRUGS (1)
  1. AMITRIPTYLINE HCL [Suspect]
     Route: 048

REACTIONS (1)
  - CARDIAC FAILURE [None]
